FAERS Safety Report 14218429 (Version 1)
Quarter: 2017Q4

REPORT INFORMATION
  Report Type: Report from Study
  Country: DE (occurrence: DE)
  Receive Date: 20171123
  Receipt Date: 20171123
  Transmission Date: 20180321
  Serious: Yes (Other)
  Sender: FDA-Public Use
  Company Number: DE-ROCHE-1947143

PATIENT

DRUGS (2)
  1. CYCLOSPORINE. [Suspect]
     Active Substance: CYCLOSPORINE
     Indication: PROPHYLAXIS AGAINST TRANSPLANT REJECTION
     Route: 048
  2. MYCOPHENOLATE MOFETIL. [Suspect]
     Active Substance: MYCOPHENOLATE MOFETIL
     Indication: PROPHYLAXIS AGAINST TRANSPLANT REJECTION
     Route: 065

REACTIONS (12)
  - Gastrointestinal haemorrhage [Unknown]
  - Pancreatitis haemorrhagic [Unknown]
  - Agranulocytosis [Unknown]
  - Non-Hodgkin^s lymphoma [Unknown]
  - Duodenal ulcer haemorrhage [Unknown]
  - Large intestine perforation [Unknown]
  - Gastric ulcer [Unknown]
  - Pancytopenia [Unknown]
  - Duodenal ulcer [Unknown]
  - Rectal haemorrhage [Unknown]
  - Gastritis haemorrhagic [Unknown]
  - Neoplasm malignant [Unknown]
